FAERS Safety Report 10217629 (Version 2)
Quarter: 2014Q3

REPORT INFORMATION
  Report Type: Spontaneous
  Country: DE (occurrence: DE)
  Receive Date: 20140604
  Receipt Date: 20140829
  Transmission Date: 20150326
  Serious: Yes (Hospitalization)
  Sender: FDA-Public Use
  Company Number: PHHY2014DE067018

PATIENT
  Age: 27 Year
  Sex: Female
  Weight: 68 kg

DRUGS (2)
  1. NITROFURANTOIN. [Concomitant]
     Active Substance: NITROFURANTOIN
     Indication: PYELONEPHRITIS
     Dates: start: 201403
  2. GILENYA [Suspect]
     Active Substance: FINGOLIMOD HYDROCHLORIDE
     Indication: RELAPSING-REMITTING MULTIPLE SCLEROSIS
     Dosage: 0.5 MG, DAILY
     Route: 048
     Dates: start: 20140422, end: 20140508

REACTIONS (7)
  - Heart rate decreased [Recovered/Resolved]
  - Erythema [Recovered/Resolved]
  - Rash pustular [Recovered/Resolved]
  - Pruritus [Recovered/Resolved]
  - Hypersensitivity [Recovered/Resolved]
  - Dyspnoea [Recovered/Resolved]
  - Dysphagia [Recovered/Resolved]

NARRATIVE: CASE EVENT DATE: 20140507
